FAERS Safety Report 5870147-1 (Version None)
Quarter: 2008Q3

REPORT INFORMATION
  Report Type: 
  Country: None (occurrence: None)
  Receive Date: 20080904
  Receipt Date: 20030725
  Transmission Date: 20090109
  Serious: Yes (Other)
  Sender: FDA-Public Use
  Company Number: US-BAYER-200830567NA

PATIENT
  Sex: Female
  Weight: 64 kg

DRUGS (2)
  1. AVELOX [Suspect]
     Indication: SINUSITIS
     Dosage: TOTAL DAILY DOSE: 400 MG  UNIT DOSE: 400 MG
     Route: 048
  2. ZITHROMAX [Concomitant]

REACTIONS (4)
  - DIZZINESS [None]
  - MEMORY IMPAIRMENT [None]
  - MOBILITY DECREASED [None]
  - PARANOIA [None]
